FAERS Safety Report 6846063-5 (Version None)
Quarter: 2010Q3

REPORT INFORMATION
  Report Type: 
  Country: None (occurrence: None)
  Receive Date: 20100715
  Receipt Date: 20080609
  Transmission Date: 20110219
  Serious: No
  Sender: FDA-Public Use
  Company Number: US-PFIZER INC-2007074094

PATIENT
  Sex: Female

DRUGS (5)
  1. CHANTIX [Suspect]
     Indication: SMOKING CESSATION THERAPY
     Route: 048
     Dates: start: 20070721, end: 20070801
  2. ADVAIR DISKUS 100/50 [Concomitant]
     Route: 055
  3. VYTORIN [Concomitant]
  4. ESTROGENS [Concomitant]
  5. ALBUTEROL [Concomitant]
     Route: 055

REACTIONS (2)
  - HYPERPHAGIA [None]
  - HYPERSOMNIA [None]
